FAERS Safety Report 14233105 (Version 5)
Quarter: 2018Q3

REPORT INFORMATION
  Report Type: Spontaneous
  Country: US (occurrence: US)
  Receive Date: 20171128
  Receipt Date: 20180716
  Transmission Date: 20181010
  Serious: Yes (Death, Hospitalization)
  Sender: FDA-Public Use
  Company Number: US-ACTELION-A-US2017-162931

PATIENT
  Age: 11 Year
  Sex: Male
  Weight: 30.39 kg

DRUGS (16)
  1. GENTAMYCIN [Concomitant]
     Active Substance: GENTAMICIN
     Dosage: 80 MG, EVERY OTHER MONTH
  2. REMODULIN [Concomitant]
     Active Substance: TREPROSTINIL
     Dosage: 70 NG/KG, PER MIN
     Route: 058
  3. XOPENEX [Concomitant]
     Active Substance: LEVALBUTEROL HYDROCHLORIDE
     Indication: DYSPNOEA
     Dosage: 1.25 MG, Q4HRS
  4. PULMICORT TURBUHALER [Concomitant]
     Active Substance: BUDESONIDE
     Dosage: UNK, BID
     Route: 055
  5. GUAIFENESIN. [Concomitant]
     Active Substance: GUAIFENESIN
     Dosage: 100 MG, TID
  6. NASONEX AQUEOUS [Concomitant]
     Active Substance: MOMETASONE FUROATE
     Dosage: 50 MCG, TID
  7. NYSTATIN. [Concomitant]
     Active Substance: NYSTATIN
     Indication: SKIN IRRITATION
     Dosage: UNK, BID
  8. SILDENAFIL. [Concomitant]
     Active Substance: SILDENAFIL
     Dosage: 20 MG, TID
  9. CETIRIZINE [Concomitant]
     Active Substance: CETIRIZINE HYDROCHLORIDE
     Indication: ANAPHYLACTIC REACTION
     Dosage: 5 ML, QD PRN
  10. HYDROXYZINE [Concomitant]
     Active Substance: HYDROXYZINE HYDROCHLORIDE
     Indication: PRURITUS
     Dosage: 25 MG, TID
  11. TRACLEER [Suspect]
     Active Substance: BOSENTAN
     Indication: PULMONARY ARTERIAL HYPERTENSION
     Dosage: 62.5 MG, BID
     Route: 048
     Dates: start: 2011
  12. IBUPROFEN. [Concomitant]
     Active Substance: IBUPROFEN
     Indication: PAIN
     Dosage: 200 MG, Q6HRS
  13. XOPENEX [Concomitant]
     Active Substance: LEVALBUTEROL HYDROCHLORIDE
     Indication: WHEEZING
     Dosage: UNK, Q6HRS
  14. SALINE KARE [Concomitant]
     Indication: RESPIRATORY DISTRESS
     Dosage: 3 ML, Q2HR PRN
  15. FAMOTIDINE. [Concomitant]
     Active Substance: FAMOTIDINE
     Indication: ANAPHYLACTIC REACTION
     Dosage: 20 MG, BID
  16. FERROUS SULFATE. [Concomitant]
     Active Substance: FERROUS SULFATE
     Dosage: 3.75 ML, BID

REACTIONS (23)
  - Nasal congestion [Recovering/Resolving]
  - Sepsis [Fatal]
  - Infusion site cellulitis [Unknown]
  - Acute respiratory distress syndrome [Fatal]
  - Infusion site scar [Unknown]
  - Pneumonia adenoviral [Fatal]
  - Rubulavirus test positive [Recovering/Resolving]
  - Proteus test positive [Recovering/Resolving]
  - Cough [Recovering/Resolving]
  - Hypoxia [Recovering/Resolving]
  - Adenovirus infection [Not Recovered/Not Resolved]
  - Catheter site abscess [Not Recovered/Not Resolved]
  - Dyspnoea [Recovering/Resolving]
  - Oxygen therapy [Recovering/Resolving]
  - Increased bronchial secretion [Recovering/Resolving]
  - Pyrexia [Unknown]
  - Rash [Unknown]
  - Acute respiratory failure [Fatal]
  - Lower respiratory tract infection viral [Recovering/Resolving]
  - Right ventricular hypertrophy [Recovering/Resolving]
  - Rhonchi [Recovering/Resolving]
  - Malaise [Unknown]
  - Catheter site pain [Unknown]

NARRATIVE: CASE EVENT DATE: 20171113
